FAERS Safety Report 25994071 (Version 1)
Quarter: 2025Q4

REPORT INFORMATION
  Report Type: Report from Study
  Country: US (occurrence: US)
  Receive Date: 20251104
  Receipt Date: 20251104
  Transmission Date: 20260117
  Serious: Yes (Other)
  Sender: BIOCON
  Company Number: US-BIOCON-BCN-2025-000334

PATIENT
  Age: 92 Year
  Sex: Female

DRUGS (1)
  1. TORPENZ [Suspect]
     Active Substance: EVEROLIMUS
     Indication: Breast cancer female
     Dosage: TAKE 1 TABLET (10 MG) BY MOUTH ONCE DAILY
     Route: 048
     Dates: start: 20250805, end: 202510

REACTIONS (3)
  - Hepatic function abnormal [Not Recovered/Not Resolved]
  - Blood bilirubin increased [Not Recovered/Not Resolved]
  - Chromaturia [Not Recovered/Not Resolved]
